FAERS Safety Report 4514912-1 (Version None)
Quarter: 2004Q4

REPORT INFORMATION
  Report Type: 
  Country: None (occurrence: None)
  Receive Date: 20041129
  Receipt Date: 20041129
  Transmission Date: 20050328
  Serious: Yes (Hospitalization)
  Sender: FDA-Public Use
  Company Number: None

PATIENT
  Age: 34 Year
  Sex: Male
  Weight: 50.8029 kg

DRUGS (5)
  1. TENOFOVIR  300 MG  GILEAD [Suspect]
  2. MARINOL [Concomitant]
  3. TRIMETHOPRIM + SULFAMETHOXAZOLE [Concomitant]
  4. FLUCONAZOLE [Concomitant]
  5. AZITHROMYCIN [Concomitant]

REACTIONS (4)
  - NOCTURIA [None]
  - POLLAKIURIA [None]
  - RENAL FAILURE ACUTE [None]
  - URINE ANALYSIS ABNORMAL [None]
